FAERS Safety Report 6526899-0 (Version None)
Quarter: 2010Q1

REPORT INFORMATION
  Report Type: 
  Country: None (occurrence: None)
  Receive Date: 20100105
  Receipt Date: 20091228
  Transmission Date: 20100710
  Serious: Yes (Hospitalization, Other)
  Sender: FDA-Public Use
  Company Number: JP-PFIZER INC-2009296037

PATIENT
  Sex: Male
  Weight: 2.638 kg

DRUGS (20)
  1. SILDENAFIL CITRATE [Suspect]
     Indication: PULMONARY HYPERTENSION
     Dosage: 1 MG, 4X/DAY
     Route: 048
     Dates: start: 20090303, end: 20090603
  2. SILDENAFIL CITRATE [Suspect]
     Indication: SCIMITAR SYNDROME
     Dosage: 8 MG, 4X/DAY
     Route: 048
     Dates: start: 20090613
  3. TRIGLYCERIDES [Suspect]
     Indication: MALNUTRITION
     Dosage: 3 UL, 2X/DAY
     Dates: start: 20090623, end: 20090702
  4. TRIGLYCERIDES [Suspect]
     Dosage: 4 UL, 2X/DAY
     Dates: start: 20090703, end: 20090709
  5. TRIGLYCERIDES [Suspect]
     Dosage: 6 UL, 2X/DAY
     Dates: start: 20090710, end: 20090806
  6. TRIGLYCERIDES [Suspect]
     Dosage: 8 UL, 2X/DAY
     Dates: start: 20090807, end: 20090925
  7. TRIGLYCERIDES [Suspect]
     Dosage: UNK
     Route: 048
     Dates: start: 20090623, end: 20091014
  8. FLOLAN [Concomitant]
     Indication: PULMONARY HYPERTENSION
     Dosage: 0.192 MG, 1X/DAY
     Route: 042
     Dates: start: 20090206, end: 20090831
  9. FLOLAN [Concomitant]
     Dosage: UNK
     Dates: start: 20090825
  10. MIDAZOLAM HCL [Concomitant]
     Route: 042
     Dates: end: 20090608
  11. CORETEC [Concomitant]
     Indication: PULMONARY HYPERTENSION
     Dosage: 0.48 MG, 1X/DAY
     Route: 042
     Dates: end: 20090407
  12. OXYGEN [Concomitant]
     Indication: PULMONARY HYPERTENSION
     Dosage: UNK
     Route: 055
     Dates: start: 20090121
  13. NITROUS OXIDE [Concomitant]
     Indication: PULMONARY HYPERTENSION
     Route: 055
  14. ONON [Concomitant]
     Dosage: UNK
     Route: 048
     Dates: start: 20090423, end: 20091014
  15. GASTER [Concomitant]
     Dosage: UNK
     Route: 048
     Dates: start: 20090503, end: 20090707
  16. LASIX [Concomitant]
     Dosage: UNK
     Route: 048
     Dates: start: 20090528, end: 20091001
  17. ALDACTONE [Concomitant]
     Dosage: UNK
     Route: 048
     Dates: start: 20090528, end: 20090625
  18. INCREMIN [Concomitant]
     Dosage: UNK
     Route: 048
     Dates: start: 20090614, end: 20091014
  19. PROCYLIN [Concomitant]
     Dosage: UNK
     Route: 048
     Dates: start: 20090421, end: 20091014
  20. ERYTHROMYCIN [Concomitant]
     Indication: LUNG DISORDER
     Dosage: UNK
     Route: 048
     Dates: start: 20090612, end: 20091014

REACTIONS (3)
  - CARDIAC FAILURE [None]
  - FOOD INTERACTION [None]
  - RESTLESSNESS [None]
